FAERS Safety Report 6554058-4 (Version None)
Quarter: 2010Q1

REPORT INFORMATION
  Report Type: 
  Country: None (occurrence: None)
  Receive Date: 20100125
  Receipt Date: 20100125
  Transmission Date: 20100710
  Serious: No
  Sender: FDA-Public Use
  Company Number: None

PATIENT
  Sex: Female
  Weight: 58.9676 kg

DRUGS (2)
  1. LIPITOR [Suspect]
     Indication: CAROTID ARTERY OCCLUSION
     Dosage: LIPITOR 10MG DAILY
     Dates: start: 20091004
  2. LIPITOR [Suspect]
     Indication: CAROTID ARTERY OCCLUSION
     Dosage: LIPITOR 10MG DAILY
     Dates: start: 20100108

REACTIONS (9)
  - ALOPECIA [None]
  - CHROMATURIA [None]
  - CONSTIPATION [None]
  - DISCOMFORT [None]
  - DRUG INTOLERANCE [None]
  - INSOMNIA [None]
  - MYALGIA [None]
  - PRODUCT QUALITY ISSUE [None]
  - URINE OUTPUT DECREASED [None]
